FAERS Safety Report 6482652 (Version 2)
Quarter: 2012Q4

REPORT INFORMATION
  Report Type: 
  Country: US (occurrence: US)
  Receive Date: 20071206
  Receipt Date: 20121023
  Transmission Date: 20130627
  Serious: Yes (Other)
  Sender: FDA-Public Use
  Company Number: US-AMGEN-US216354

PATIENT
  Sex: Male

DRUGS (4)
  1. ENBREL [Suspect]
     Indication: PSORIASIS
     Dosage: 50 mg, qwk
     Route: 058
     Dates: end: 20070323
  2. ATORVASTATIN CALCIUM [Concomitant]
     Dosage: UNK UNK, UNK
  3. ASPIRIN [Concomitant]
     Dosage: UNK UNK, UNK
  4. AMLODIPINE BESILATE [Concomitant]
     Dosage: UNK UNK, UNK

REACTIONS (2)
  - Melanoma recurrent [Unknown]
  - Psoriasis [Unknown]
